FAERS Safety Report 12902586 (Version 1)
Quarter: 2016Q4

REPORT INFORMATION
  Report Type: Spontaneous
  Country: US (occurrence: US)
  Receive Date: 20161101
  Receipt Date: 20161101
  Transmission Date: 20170207
  Serious: Yes (Life-Threatening, Hospitalization, Disabling)
  Sender: FDA-Public Use
  Company Number: None

PATIENT
  Age: 42 Year
  Sex: Female
  Weight: 87.75 kg

DRUGS (4)
  1. ZOCOR [Concomitant]
     Active Substance: SIMVASTATIN
  2. MULTI VITAMIN [Concomitant]
     Active Substance: VITAMINS
  3. OMEGA 3 ACID ETHYL ESTERS CAPSUL [Suspect]
     Active Substance: OMEGA-3-ACID ETHYL ESTERS
     Indication: HYPERLIPIDAEMIA
     Dosage: ?          QUANTITY:2 CAPSULE(S);?
     Route: 048
  4. EYE DROPS [Concomitant]
     Active Substance: TETRAHYDROZOLINE HYDROCHLORIDE

REACTIONS (6)
  - Pancreatitis [None]
  - Haematemesis [None]
  - Anaemia [None]
  - Gastritis [None]
  - Constipation [None]
  - Lymphadenopathy [None]

NARRATIVE: CASE EVENT DATE: 20161011
